FAERS Safety Report 5462438-3 (Version None)
Quarter: 2007Q3

REPORT INFORMATION
  Report Type: 
  Country: None (occurrence: None)
  Receive Date: 20070920
  Receipt Date: 20070912
  Transmission Date: 20080115
  Serious: Yes (Hospitalization)
  Sender: FDA-Public Use
  Company Number: US-JNJFOC-20070902455

PATIENT
  Age: 56 Year
  Sex: Male

DRUGS (4)
  1. REMICADE [Suspect]
     Indication: COLITIS ULCERATIVE
  2. ASOCOL [Concomitant]
  3. IMURAN [Concomitant]
  4. STEROIDS [Concomitant]

REACTIONS (2)
  - PNEUMONIA [None]
  - SYSTEMIC LUPUS ERYTHEMATOSUS [None]
